FAERS Safety Report 12843331 (Version 1)
Quarter: 2016Q4

REPORT INFORMATION
  Report Type: Spontaneous
  Country: US (occurrence: US)
  Receive Date: 20161013
  Receipt Date: 20161013
  Transmission Date: 20170207
  Serious: No
  Sender: FDA-Public Use
  Company Number: US-ACTAVIS-2015-26201

PATIENT
  Sex: Female

DRUGS (4)
  1. GABAPENTIN (AELLC) [Suspect]
     Active Substance: GABAPENTIN
     Indication: FIBROMYALGIA
  2. TRAMADOL. [Concomitant]
     Active Substance: TRAMADOL
     Indication: PRODUCT USED FOR UNKNOWN INDICATION
     Dosage: 50 MG, PRN
     Route: 065
  3. GABAPENTIN (AELLC) [Suspect]
     Active Substance: GABAPENTIN
     Indication: RESTLESS LEGS SYNDROME
     Dosage: UNK, UNKNOWN
     Route: 048
     Dates: start: 20150723, end: 20150907
  4. PRISTIQ EXTENDED-RELEASE [Concomitant]
     Active Substance: DESVENLAFAXINE SUCCINATE
     Indication: PRODUCT USED FOR UNKNOWN INDICATION
     Dosage: UNK, UNKNOWN
     Route: 065

REACTIONS (2)
  - Feeling abnormal [Recovered/Resolved]
  - Fatigue [Recovered/Resolved]
